FAERS Safety Report 5121477-2 (Version None)
Quarter: 2006Q4

REPORT INFORMATION
  Report Type: 
  Country: None (occurrence: None)
  Receive Date: 20061006
  Receipt Date: 20060919
  Transmission Date: 20070319
  Serious: Yes (Death, Other)
  Sender: FDA-Public Use
  Company Number: PHHO2006CO15662

PATIENT
  Age: 74 Year
  Sex: Male

DRUGS (5)
  1. INSULIN [Concomitant]
     Dosage: UNK, UNK
     Dates: end: 20060910
  2. FUROSEMIDE [Concomitant]
     Dosage: UNK, UNK
     Dates: end: 20060910
  3. METFORMIN HCL [Concomitant]
     Dosage: UNK, UNK
     Dates: end: 20060910
  4. ACETAMINOPHEN [Concomitant]
     Dosage: UNK, UNK
     Dates: end: 20060910
  5. DIOVAN [Suspect]
     Indication: HYPERTENSION
     Dosage: 80 MG, BID
     Route: 048
     Dates: end: 19920810

REACTIONS (4)
  - CEREBROVASCULAR ACCIDENT [None]
  - DIARRHOEA [None]
  - FLUID RETENTION [None]
  - HYPOTENSION [None]
